FAERS Safety Report 19188817 (Version 1)
Quarter: 2021Q2

REPORT INFORMATION
  Report Type: Spontaneous
  Country: US (occurrence: US)
  Receive Date: 20210428
  Receipt Date: 20210428
  Transmission Date: 20210717
  Serious: No
  Sender: FDA-Public Use
  Company Number: US-ASTRAZENECA-2021A296553

PATIENT
  Sex: Female
  Weight: 72.6 kg

DRUGS (1)
  1. LYNPARZA [Suspect]
     Active Substance: OLAPARIB
     Indication: OVARIAN CANCER
     Route: 048
     Dates: start: 20201230

REACTIONS (4)
  - Arthralgia [Unknown]
  - Diverticulitis [Unknown]
  - Rhinorrhoea [Unknown]
  - Diarrhoea [Unknown]
